FAERS Safety Report 5209240-5 (Version None)
Quarter: 2007Q1

REPORT INFORMATION
  Report Type: 
  Country: None (occurrence: None)
  Receive Date: 20070116
  Receipt Date: 20070103
  Transmission Date: 20070707
  Serious: Yes (Other)
  Sender: FDA-Public Use
  Company Number: GB-ELI_LILLY_AND_COMPANY-GB200701000848

PATIENT
  Age: 16 Year
  Sex: Male
  Weight: 59.4 kg

DRUGS (1)
  1. ATOMOXETINE HYDROCHLORIDE [Suspect]
     Dosage: 80 MG, UNK
     Route: 048
     Dates: start: 20050217

REACTIONS (2)
  - EMOTIONAL DISORDER [None]
  - TACHYCARDIA [None]
